FAERS Safety Report 24111176 (Version 5)
Quarter: 2024Q3

REPORT INFORMATION
  Report Type: Spontaneous
  Country: DE (occurrence: DE)
  Receive Date: 20240718
  Receipt Date: 20240909
  Transmission Date: 20241016
  Serious: Yes (Life-Threatening, Hospitalization, Other)
  Sender: IPSEN
  Company Number: DE-IPSEN Group, Research and Development-2024-14144

PATIENT
  Age: 73 Year
  Sex: Female

DRUGS (4)
  1. DYSPORT [Suspect]
     Active Substance: ABOBOTULINUMTOXINA
     Indication: Dystonia
     Dosage: 500 U DYSPORT WAS INJECTED INTO THE OBLIQUUS ABDOMINIS AND RECTUS ABDOMINIS MUSCLES AT 3 INJECTION P
     Route: 065
     Dates: start: 2024, end: 2024
  2. DYSPORT [Suspect]
     Active Substance: ABOBOTULINUMTOXINA
     Indication: Off label use
  3. AMLODIPINE [Concomitant]
     Active Substance: AMLODIPINE BESYLATE
  4. TAPENTADOL [Concomitant]
     Active Substance: TAPENTADOL

REACTIONS (5)
  - Condition aggravated [Not Recovered/Not Resolved]
  - Neuromuscular toxicity [Not Recovered/Not Resolved]
  - Coma [Recovered/Resolved]
  - Off label use [Unknown]
  - Prescribed overdose [Unknown]

NARRATIVE: CASE EVENT DATE: 20240101
